FAERS Safety Report 6524217-5 (Version None)
Quarter: 2009Q4

REPORT INFORMATION
  Report Type: 
  Country: None (occurrence: None)
  Receive Date: 20091230
  Receipt Date: 20091230
  Transmission Date: 20100525
  Serious: Yes (Other)
  Sender: FDA-Public Use
  Company Number: None

PATIENT
  Sex: Female
  Weight: 68.0849 kg

DRUGS (1)
  1. PACLITAXEL [Suspect]
     Dosage: 342MG
     Dates: start: 20091222

REACTIONS (2)
  - CHEST DISCOMFORT [None]
  - DYSPNOEA [None]
